FAERS Safety Report 11428736 (Version 1)
Quarter: 2015Q3

REPORT INFORMATION
  Report Type: Report from Study
  Country: GB (occurrence: GB)
  Receive Date: 20150828
  Receipt Date: 20150828
  Transmission Date: 20151125
  Serious: Yes (Hospitalization)
  Sender: FDA-Public Use
  Company Number: PHFR2015GB006217

PATIENT
  Age: 76 Year
  Sex: Male

DRUGS (8)
  1. NO TREATMENT RECEIVED [Suspect]
     Active Substance: UNSPECIFIED INGREDIENT
     Indication: PRODUCT USED FOR UNKNOWN INDICATION
     Dosage: UNK
     Route: 065
     Dates: start: 20150722
  2. ATORVASTATIN [Concomitant]
     Active Substance: ATORVASTATIN
     Indication: CEREBROVASCULAR ACCIDENT
     Dosage: 40 MG, QD
     Route: 065
     Dates: start: 20110810
  3. CLOPIDOGREL [Concomitant]
     Active Substance: CLOPIDOGREL BISULFATE
     Indication: CEREBROVASCULAR ACCIDENT
     Dosage: 75 MG, QD
     Route: 065
     Dates: start: 20110810
  4. IMATINIB [Suspect]
     Active Substance: IMATINIB
     Indication: PRODUCT USED FOR UNKNOWN INDICATION
     Dosage: 400 MG, QD
     Route: 065
  5. FINASTERIDE. [Concomitant]
     Active Substance: FINASTERIDE
     Indication: CEREBROVASCULAR ACCIDENT
     Dosage: UNK UNK, QD
     Route: 065
     Dates: start: 20110810
  6. LISINOPRIL. [Concomitant]
     Active Substance: LISINOPRIL
     Indication: CEREBROVASCULAR ACCIDENT
     Dosage: 5 MG, QD
     Route: 065
     Dates: start: 20110810
  7. AMLODIPINE [Concomitant]
     Active Substance: AMLODIPINE BESYLATE
     Indication: CEREBROVASCULAR ACCIDENT
     Dosage: 5 MG, QD
     Route: 065
     Dates: start: 20110810
  8. TAMSULOSIN [Concomitant]
     Active Substance: TAMSULOSIN
     Indication: CEREBROVASCULAR ACCIDENT
     Dosage: 400 MG, QD
     Route: 065
     Dates: start: 20110810

REACTIONS (2)
  - Concomitant disease aggravated [Unknown]
  - Intermittent claudication [Unknown]

NARRATIVE: CASE EVENT DATE: 20150813
